FAERS Safety Report 8429808-2 (Version None)
Quarter: 2012Q2

REPORT INFORMATION
  Report Type: 
  Country: None (occurrence: None)
  Receive Date: 20120323
  Receipt Date: 20110603
  Transmission Date: 20120825
  Serious: Yes (Other)
  Sender: FDA-Public Use
  Company Number: 163-21880-11022647

PATIENT
  Age: 57 Year
  Sex: Female
  Weight: 70.3075 kg

DRUGS (8)
  1. AUGMENTIN '125' [Concomitant]
  2. REVLIMID [Suspect]
     Indication: MULTIPLE MYELOMA
     Dosage: 10 MG, DAILY FOR 21 DAYS, PO
     Route: 048
     Dates: start: 20101201, end: 20110201
  3. DECADRON [Concomitant]
  4. MEGESTROL ACETATE [Concomitant]
  5. METOPROLOL TARTRATE [Concomitant]
  6. VELCADE [Concomitant]
  7. ALLOPURINOL [Concomitant]
  8. FUROSEMIDE [Concomitant]

REACTIONS (3)
  - DEEP VEIN THROMBOSIS [None]
  - PAIN IN EXTREMITY [None]
  - MULTIPLE MYELOMA [None]
